FAERS Safety Report 12265883 (Version 8)
Quarter: 2019Q3

REPORT INFORMATION
  Report Type: Report from Study
  Country: US (occurrence: US)
  Receive Date: 20160413
  Receipt Date: 20190702
  Transmission Date: 20191004
  Serious: Yes (Hospitalization, Other)
  Sender: FDA-Public Use
  Company Number: US-ARIAD PHARMACEUTICALS, INC-2016US006352

PATIENT
  Age: 30 Year
  Sex: Male

DRUGS (7)
  1. PONATINIB [Suspect]
     Active Substance: PONATINIB
     Dosage: 30 MILLIGRAM, QD
     Route: 048
     Dates: start: 20180207
  2. PONATINIB [Suspect]
     Active Substance: PONATINIB
     Dosage: 30 MILLIGRAM, QD
     Route: 048
  3. PONATINIB [Suspect]
     Active Substance: PONATINIB
     Dosage: 15 MILLIGRAM, QD
     Route: 048
     Dates: start: 201705
  4. PONATINIB [Suspect]
     Active Substance: PONATINIB
     Dosage: 15 MILLIGRAM, QD
     Route: 048
  5. ASPIRIN                            /00002701/ [Concomitant]
     Active Substance: ASPIRIN
     Indication: PRODUCT USED FOR UNKNOWN INDICATION
     Dosage: UNK, QD
     Route: 065
  6. PONATINIB [Suspect]
     Active Substance: PONATINIB
     Indication: CHRONIC MYELOID LEUKAEMIA
     Dosage: 45 MILLIGRAM, QD
     Route: 048
     Dates: start: 20160311, end: 20160516
  7. PONATINIB [Suspect]
     Active Substance: PONATINIB
     Dosage: 30 MILLIGRAM, QD
     Route: 048

REACTIONS (24)
  - Vitamin D deficiency [Unknown]
  - Infection [Unknown]
  - Intentional product misuse [Unknown]
  - Dyspnoea [Recovered/Resolved]
  - Catheter site cellulitis [Unknown]
  - Platelet count decreased [Not Recovered/Not Resolved]
  - Mucosal inflammation [Unknown]
  - Chest discomfort [Recovered/Resolved]
  - Chest pain [Unknown]
  - Rash [Not Recovered/Not Resolved]
  - Inguinal hernia [Unknown]
  - Chronic myeloid leukaemia recurrent [Unknown]
  - Cytokine storm [Unknown]
  - Alopecia [Unknown]
  - Device related thrombosis [Unknown]
  - Allogenic stem cell transplantation [Unknown]
  - Increased tendency to bruise [Recovered/Resolved]
  - Arthralgia [Recovered/Resolved]
  - Rash pruritic [Unknown]
  - Osteoporosis [Unknown]
  - Extraocular muscle paresis [Unknown]
  - Diplopia [Unknown]
  - Oesophagitis [Unknown]
  - Constipation [Recovered/Resolved]

NARRATIVE: CASE EVENT DATE: 201105
